FAERS Safety Report 15390528 (Version 1)
Quarter: 2018Q3

REPORT INFORMATION
  Report Type: Other
  Country: GB (occurrence: IT)
  Receive Date: 20180917
  Receipt Date: 20180917
  Transmission Date: 20181010
  Serious: Yes (Other)
  Sender: FDA-Public Use
  Company Number: GB-DIMETHAID UK LIMITED-DIM-002497-2018

PATIENT
  Age: 71 Year
  Sex: Male

DRUGS (1)
  1. DICLOFENAC SODIUM. [Suspect]
     Active Substance: DICLOFENAC SODIUM
     Indication: SEBORRHOEIC DERMATITIS
     Dosage: 3 DF, QD
     Route: 003
     Dates: start: 20180903

REACTIONS (4)
  - Application site swelling [Not Recovered/Not Resolved]
  - Erythema [Not Recovered/Not Resolved]
  - Product administered at inappropriate site [Unknown]
  - Product use in unapproved indication [Unknown]

NARRATIVE: CASE EVENT DATE: 20180903
